FAERS Safety Report 16874501 (Version 3)
Quarter: 2020Q1

REPORT INFORMATION
  Report Type: Spontaneous
  Country: US (occurrence: US)
  Receive Date: 20191001
  Receipt Date: 20200113
  Transmission Date: 20200409
  Serious: Yes (Death, Hospitalization)
  Sender: FDA-Public Use
  Company Number: US-ENDO PHARMACEUTICALS INC-2019-108182

PATIENT
  Sex: Male

DRUGS (1)
  1. PERCOCET [Suspect]
     Active Substance: ACETAMINOPHEN\OXYCODONE HYDROCHLORIDE
     Indication: MUSCULOSKELETAL PAIN
     Dosage: UNK UNKNOWN, UNKNOWN
     Route: 065

REACTIONS (10)
  - Hypertensive heart disease [Fatal]
  - Pupillary reflex impaired [Unknown]
  - Brain cancer metastatic [Unknown]
  - Unresponsive to stimuli [Unknown]
  - Arteriosclerosis [Fatal]
  - Myocardial infarction [Fatal]
  - Surgery [Unknown]
  - Overdose [Unknown]
  - Pallor [Unknown]
  - Miosis [Unknown]

NARRATIVE: CASE EVENT DATE: 2016
